FAERS Safety Report 12215895 (Version 1)
Quarter: 2016Q1

REPORT INFORMATION
  Report Type: Spontaneous
  Country: US (occurrence: US)
  Receive Date: 20160328
  Receipt Date: 20160328
  Transmission Date: 20160526
  Serious: No
  Sender: FDA-Public Use
  Company Number: US-TEVA-645084USA

PATIENT
  Sex: Male

DRUGS (2)
  1. QVAR [Suspect]
     Active Substance: BECLOMETHASONE DIPROPIONATE
     Dosage: TWO PUFFS TWICE A DAY
     Route: 055
  2. ESI [Concomitant]

REACTIONS (2)
  - Incorrect dose administered [Recovered/Resolved]
  - Device malfunction [Recovered/Resolved]
